FAERS Safety Report 23741574 (Version 1)
Quarter: 2024Q2

REPORT INFORMATION
  Report Type: Spontaneous
  Country: US (occurrence: US)
  Receive Date: 20240415
  Receipt Date: 20240415
  Transmission Date: 20240716
  Serious: Yes (Hospitalization, Other)
  Sender: FDA-Public Use
  Company Number: US-E2BLSMVVAL-SPO/USA/24/0005689

PATIENT
  Sex: Male

DRUGS (1)
  1. LURASIDONE HYDROCHLORIDE [Suspect]
     Active Substance: LURASIDONE HYDROCHLORIDE
     Indication: Psychotic disorder
     Route: 065

REACTIONS (7)
  - Aggression [Unknown]
  - Suicidal behaviour [Unknown]
  - Condition aggravated [Unknown]
  - Panic attack [Unknown]
  - Loss of personal independence in daily activities [Unknown]
  - Therapeutic response changed [Unknown]
  - Product substitution issue [Unknown]
